FAERS Safety Report 13594121 (Version 1)
Quarter: 2017Q2

REPORT INFORMATION
  Report Type: Spontaneous
  Country: US (occurrence: US)
  Receive Date: 20170530
  Receipt Date: 20170530
  Transmission Date: 20170830
  Serious: No
  Sender: FDA-Public Use
  Company Number: US-BAYER-2017-100865

PATIENT
  Age: 25 Year
  Sex: Female
  Weight: 74.97 kg

DRUGS (2)
  1. DULCOLAX PICOSULFAT [Concomitant]
     Active Substance: SODIUM PICOSULFATE
  2. MIRALAX [Suspect]
     Active Substance: POLYETHYLENE GLYCOL 3350
     Indication: COLONOSCOPY
     Dosage: 1 DF, UNK EACH DAY FOR A WEEK.
     Route: 048

REACTIONS (3)
  - Circumstance or information capable of leading to medication error [Unknown]
  - Off label use [Unknown]
  - Circumstance or information capable of leading to medication error [Unknown]

NARRATIVE: CASE EVENT DATE: 20170526
